FAERS Safety Report 10032312 (Version 3)
Quarter: 2014Q2

REPORT INFORMATION
  Report Type: Spontaneous
  Country: US (occurrence: US)
  Receive Date: 20140324
  Receipt Date: 20140630
  Transmission Date: 20141212
  Serious: Yes (Other)
  Sender: FDA-Public Use
  Company Number: US-PFIZER INC-2014077916

PATIENT
  Age: 58 Year
  Sex: Female
  Weight: 78 kg

DRUGS (1)
  1. LIPITOR [Suspect]
     Indication: LOW DENSITY LIPOPROTEIN INCREASED
     Dosage: UNK
     Route: 048
     Dates: start: 200401, end: 2010

REACTIONS (1)
  - Type 2 diabetes mellitus [Not Recovered/Not Resolved]
